FAERS Safety Report 24605239 (Version 4)
Quarter: 2025Q1

REPORT INFORMATION
  Report Type: Spontaneous
  Country: IT (occurrence: IT)
  Receive Date: 20241111
  Receipt Date: 20250115
  Transmission Date: 20250408
  Serious: Yes (Life-Threatening, Hospitalization, Other)
  Sender: MYLAN
  Company Number: IT-MEDA-M-EU-2012040195

PATIENT
  Age: 91 Year
  Sex: Female

DRUGS (16)
  1. TRAMADOL [Interacting]
     Active Substance: TRAMADOL
     Indication: Pain
     Route: 048
  2. LANSOPRAZOLE [Suspect]
     Active Substance: LANSOPRAZOLE
     Indication: Product used for unknown indication
     Dosage: 30 MILLIGRAM, QD (30 MG, DAILY)
     Route: 065
  3. LEVOFLOXACIN [Interacting]
     Active Substance: LEVOFLOXACIN
     Indication: Bacterial infection
     Dosage: 500 MILLIGRAM, QD (/DOSING DETAILS NOT PROVIDED)
     Route: 048
  4. METFORMIN [Interacting]
     Active Substance: METFORMIN HYDROCHLORIDE
     Indication: Type 2 diabetes mellitus
     Route: 048
  5. GLYBURIDE [Interacting]
     Active Substance: GLYBURIDE
     Indication: Type 2 diabetes mellitus
     Dosage: 2.5 MILLIGRAM, TID (7.5 MG QD)
     Route: 048
  6. ENALAPRIL\HYDROCHLOROTHIAZIDE [Suspect]
     Active Substance: ENALAPRIL\HYDROCHLOROTHIAZIDE
     Indication: Hypertension
     Dosage: 20 MILLIGRAM, QD (20 MG/12.5 MG/D)
     Route: 048
  7. BUPRENORPHINE [Interacting]
     Active Substance: BUPRENORPHINE
     Indication: Pain
     Dosage: 35 MICROGRAM, QH (35 MCG, 1/HR/DOSING DETAILS NOT PROVIDED)
     Route: 048
  8. NADROPARIN [Suspect]
     Active Substance: NADROPARIN
     Indication: Ischaemic stroke
     Dosage: 3.8 INTERNATIONAL UNIT, QD (3800 UNITS DAILY)
     Route: 058
  9. NADROPARIN [Suspect]
     Active Substance: NADROPARIN
     Indication: Anticoagulant therapy
  10. NADROPARIN [Suspect]
     Active Substance: NADROPARIN
     Indication: Product used for unknown indication
     Route: 048
  11. ASPIRIN [Concomitant]
     Active Substance: ASPIRIN
     Indication: Anticoagulant therapy
     Dosage: 100 MILLIGRAM, QD
     Route: 048
  12. INSULIN NOS [Concomitant]
     Active Substance: INSULIN NOS
     Indication: Product used for unknown indication
     Route: 065
  13. GLYBURIDE\METFORMIN HYDROCHLORIDE [Concomitant]
     Active Substance: GLYBURIDE\METFORMIN HYDROCHLORIDE
     Indication: Type 2 diabetes mellitus
     Dosage: 1200 MG, QD (400 MG, 3/DAY/400MG/2.5MG)
     Route: 048
  14. HYDROCHLOROTHIAZIDE [Concomitant]
     Active Substance: HYDROCHLOROTHIAZIDE
     Indication: Hypertension
     Route: 048
  15. HEPARIN CALCIUM [Concomitant]
     Active Substance: HEPARIN CALCIUM
     Indication: Middle cerebral artery stroke
     Route: 065
  16. EPARINA [Concomitant]
     Route: 065

REACTIONS (9)
  - Hypoglycaemic coma [Recovered/Resolved]
  - Coma [Recovering/Resolving]
  - Hypoglycaemia [Recovered/Resolved]
  - Drug interaction [Recovered/Resolved]
  - Localised infection [Unknown]
  - Skin warm [Recovered/Resolved]
  - Peripheral artery thrombosis [Unknown]
  - Feeling hot [Recovered/Resolved]
  - Hyperhidrosis [Recovered/Resolved]
